FAERS Safety Report 6556635-3 (Version None)
Quarter: 2010Q1

REPORT INFORMATION
  Report Type: 
  Country: None (occurrence: None)
  Receive Date: 20100128
  Receipt Date: 20100126
  Transmission Date: 20100710
  Serious: Yes (Death, Hospitalization)
  Sender: FDA-Public Use
  Company Number: US-WYE-H13149110

PATIENT
  Age: 62 Year
  Sex: Male

DRUGS (6)
  1. PIPERACILLIN AND TAZOBACTAM [Suspect]
     Indication: CELLULITIS
     Dosage: UNKNOWN DOSE ADMINISTERED IN ER
     Route: 065
  2. DROTRECOGIN ALFA [Concomitant]
     Dosage: UNKNOWN DOSE STARTED IN ICU
  3. CLINDAMYCIN [Concomitant]
     Dosage: UNKNOWN DOSE STARTED IN ICU
     Route: 065
  4. HYDROCORTISONE [Concomitant]
     Dosage: UNKNOWN DOSE STARTED IN ICU
  5. IMMUNE GLOBULIN INTRAVENOUS (HUMAN) [Concomitant]
     Dosage: UNKNOWN DOSE STARTED IN ICU
     Route: 042
  6. VANCOMYCIN [Concomitant]
     Dosage: UNKNOWN DOSE ADMINISTERED IN ER
     Route: 065

REACTIONS (5)
  - CARDIO-RESPIRATORY ARREST [None]
  - CONFUSIONAL STATE [None]
  - METABOLIC ACIDOSIS [None]
  - RESPIRATORY FAILURE [None]
  - SHOCK [None]
